FAERS Safety Report 13456192 (Version 13)
Quarter: 2017Q3

REPORT INFORMATION
  Report Type: Report from Study
  Country: US (occurrence: US)
  Receive Date: 20170419
  Receipt Date: 20170929
  Transmission Date: 20171127
  Serious: Yes (Other)
  Sender: FDA-Public Use
  Company Number: US-PFIZER INC-2017132962

PATIENT
  Age: 63 Year
  Sex: Female

DRUGS (27)
  1. CELEXA [Concomitant]
     Active Substance: CITALOPRAM HYDROBROMIDE
     Dosage: 40 MG(1 TABLET), DAILY
  2. NITROLINGUAL [Concomitant]
     Active Substance: NITROGLYCERIN
     Indication: CHEST PAIN
     Dosage: UNK UNK, AS NEEDED (1 SPRAY UNDER THE TONGUE EVERY 5 (FIVE) MINUTES; 3 DOSES 12 G 3)
     Route: 060
  3. CALCIUM 600 + D [Concomitant]
     Active Substance: CALCIUM\VITAMIN D
     Dosage: 1 DF, 2X/DAY, [CALCIUM CARBONATE 600MG, COLECALCIFEROL 400 MG]
     Route: 048
  4. ECONAZOLE NITRATE. [Concomitant]
     Active Substance: ECONAZOLE NITRATE
     Dosage: UNK
     Route: 061
  5. WESTCORT [Concomitant]
     Active Substance: HYDROCORTISONE VALERATE
     Dosage: UNK UNK, 2X/DAY
     Route: 061
  6. LIDOCAINE HCL [Concomitant]
     Active Substance: LIDOCAINE HYDROCHLORIDE
     Indication: MUCOSAL INFLAMMATION
     Dosage: SWISH AND SPIT 15 ML EVERY 6 (SIX) HOURS
  7. TENORMIN [Concomitant]
     Active Substance: ATENOLOL
     Dosage: 25 MG(1 TABLET), DAILY
     Route: 048
  8. PRILOSEC [Concomitant]
     Active Substance: OMEPRAZOLE MAGNESIUM
     Dosage: 20 MG(1 CAPSULE), 2X/DAY
  9. COMPAZINE [Concomitant]
     Active Substance: PROCHLORPERAZINE MALEATE
     Indication: NAUSEA
     Dosage: 10 MG, AS NEEDED (EVERY 6 (SIX) HOURS)
     Route: 048
  10. LETROZOLE. [Concomitant]
     Active Substance: LETROZOLE
     Dosage: UNK
     Dates: start: 20160126
  11. FIORICET [Concomitant]
     Active Substance: ACETAMINOPHEN\BUTALBITAL\CAFFEINE
     Dosage: 2 DF, AS NEEDED [BUTALBITA 50 MG, CAFFEINE 40 MG, PARACETAMOL 325 MG]
  12. VITAMIN D3 [Concomitant]
     Active Substance: CHOLECALCIFEROL
     Dosage: 1000 IU(1 CAPSULE), DAILY
  13. HYDRODIURIL [Concomitant]
     Active Substance: HYDROCHLOROTHIAZIDE
     Dosage: 25 MG(1 TABLET), DAILY
     Route: 048
  14. PERCOCET [Concomitant]
     Active Substance: ACETAMINOPHEN\OXYCODONE HYDROCHLORIDE
     Indication: PAIN
     Dosage: 1 TABLET, AS NEEDED [OXYCODONE HYDROCHLORIDE 7.5 MG, PARACETAMOL 325 MG] (EVERY 4 (FOUR) HOURS)
     Route: 048
  15. IBRANCE [Suspect]
     Active Substance: PALBOCICLIB
     Indication: BREAST CANCER METASTATIC
     Dosage: 125 MG, CYCLIC (ONCE DAILY FOR 21 DAYS IN A ROW, FOLLOWED BY 7 DAYS OFF)
     Route: 048
     Dates: start: 20170320
  16. ASPIRIN 81 [Concomitant]
     Active Substance: ASPIRIN
     Dosage: 81 MG(1 TABLET), DAILY
  17. ESGIC [Concomitant]
     Active Substance: ACETAMINOPHEN\BUTALBITAL\CAFFEINE
     Dosage: 2 DF, AS NEEDED,  [BUTALBITA 50 MG, CAFFEINE 40 MG, PARACETAMOL 325 MG]
  18. COMPAZINE [Concomitant]
     Active Substance: PROCHLORPERAZINE MALEATE
     Indication: VOMITING
  19. ASTELIN [Concomitant]
     Active Substance: AZELASTINE HYDROCHLORIDE
     Dosage: 2 SPRAYS IN EACH NOSTRIL,TWICE DAILY
     Route: 045
  20. ZESTRIL [Concomitant]
     Active Substance: LISINOPRIL
     Dosage: 5 MG(1 TABLET), DAILY
     Route: 048
  21. IBRANCE [Suspect]
     Active Substance: PALBOCICLIB
     Dosage: 125 MG, DAILY
     Route: 048
     Dates: start: 20170320
  22. BENADRYL [Concomitant]
     Active Substance: DIPHENHYDRAMINE HYDROCHLORIDE
     Dosage: 25 MG(ONE CAPSULE), 2X/DAY
     Route: 048
  23. COMBIVENT [Concomitant]
     Active Substance: ALBUTEROL SULFATE\IPRATROPIUM BROMIDE
     Dosage: UNK (18-103 MCG/ACT INHALER INHALE 2 PUFFS.)
     Route: 055
  24. DECADRON [Concomitant]
     Active Substance: DEXAMETHASONE
     Dosage: 20 MG, UNK (12 HOURS AND 6 HOURS PRIOR TO CHEMO)
     Route: 048
  25. VALIUM [Concomitant]
     Active Substance: DIAZEPAM
     Dosage: 5 MG(1 TABLET), 3 TIMES A DAY AS NEEDED
     Route: 048
  26. PRINIVIL [Concomitant]
     Active Substance: LISINOPRIL
     Dosage: 5 MG(1 TABLET), DAILY
     Route: 048
  27. PROAIR HFA [Concomitant]
     Active Substance: ALBUTEROL SULFATE
     Dosage: (MCG/ACT INHALER TAKE 2 PUFFS BY MOUTH EVERY 4 HOURS AS NEEDED)
     Route: 048

REACTIONS (24)
  - Headache [Not Recovered/Not Resolved]
  - Oedema peripheral [Unknown]
  - Irritability [Unknown]
  - Pain [Not Recovered/Not Resolved]
  - Peripheral swelling [Recovering/Resolving]
  - Bone marrow failure [Not Recovered/Not Resolved]
  - Chest discomfort [Recovered/Resolved]
  - Neuropathy peripheral [Unknown]
  - Increased appetite [Unknown]
  - Visual impairment [Unknown]
  - Mood altered [Unknown]
  - Lymphoedema [Not Recovered/Not Resolved]
  - Hyperhidrosis [Unknown]
  - Oedema [Unknown]
  - Fatigue [Not Recovered/Not Resolved]
  - Anxiety [Unknown]
  - Agitation [Unknown]
  - Neutropenia [Unknown]
  - Diarrhoea [Recovered/Resolved]
  - Nausea [Recovered/Resolved]
  - Weight increased [Unknown]
  - Depression [Unknown]
  - Productive cough [Not Recovered/Not Resolved]
  - Joint swelling [Recovering/Resolving]

NARRATIVE: CASE EVENT DATE: 2017
